FAERS Safety Report 20064495 (Version 1)
Quarter: 2021Q4

REPORT INFORMATION
  Report Type: Spontaneous
  Country: BR (occurrence: BR)
  Receive Date: 20211112
  Receipt Date: 20211112
  Transmission Date: 20220303
  Serious: Yes (Other)
  Sender: FDA-Public Use
  Company Number: BR-AMGEN-BRASP2021175734

PATIENT
  Age: 41 Year
  Sex: Female

DRUGS (3)
  1. PEGFILGRASTIM [Suspect]
     Active Substance: PEGFILGRASTIM
     Indication: Product used for unknown indication
     Dosage: UNK
     Route: 065
  2. CYCLOPHOSPHAMIDE [Concomitant]
     Active Substance: CYCLOPHOSPHAMIDE
     Indication: Breast cancer
     Dosage: 600 MILLIGRAM/SQ. METER
  3. DOXORUBICIN [Concomitant]
     Active Substance: DOXORUBICIN
     Indication: Breast cancer
     Dosage: 60 MILLIGRAM/SQ. METER

REACTIONS (1)
  - Febrile neutropenia [Recovered/Resolved]
